FAERS Safety Report 15097056 (Version 1)
Quarter: 2018Q3

REPORT INFORMATION
  Report Type: Spontaneous
  Country: US (occurrence: US)
  Receive Date: 20180702
  Receipt Date: 20180702
  Transmission Date: 20181010
  Serious: No
  Sender: FDA-Public Use
  Company Number: US-GLAXOSMITHKLINE-US2018111867

PATIENT
  Age: 70 Year
  Sex: Female

DRUGS (1)
  1. DICLOFENAC SODIUM GEL [Suspect]
     Active Substance: DICLOFENAC SODIUM
     Indication: PRODUCT USED FOR UNKNOWN INDICATION
     Dosage: UNK
     Dates: start: 20180426

REACTIONS (5)
  - Application site rash [Unknown]
  - Fatigue [Unknown]
  - Application site pain [Unknown]
  - Application site scab [Unknown]
  - Product use issue [Unknown]

NARRATIVE: CASE EVENT DATE: 20180506
